FAERS Safety Report 6174164-6 (Version None)
Quarter: 2009Q2

REPORT INFORMATION
  Report Type: 
  Country: None (occurrence: None)
  Receive Date: 20090430
  Receipt Date: 20080414
  Transmission Date: 20091009
  Serious: No
  Sender: FDA-Public Use
  Company Number: US-ASTRAZENECA-2008UW07514

PATIENT
  Age: 23188 Day
  Sex: Female

DRUGS (3)
  1. NEXIUM [Suspect]
     Route: 048
     Dates: start: 20080410
  2. NAPROXEN [Concomitant]
     Indication: PAIN
  3. CODEINE [Concomitant]

REACTIONS (2)
  - MENTAL IMPAIRMENT [None]
  - NERVOUSNESS [None]
